FAERS Safety Report 25620808 (Version 2)
Quarter: 2025Q3

REPORT INFORMATION
  Report Type: Spontaneous
  Country: JP (occurrence: JP)
  Receive Date: 20250730
  Receipt Date: 20250804
  Transmission Date: 20251021
  Serious: Yes (Hospitalization, Other)
  Sender: ALEXION PHARMACEUTICALS
  Company Number: JP-AstraZeneca-CH-00916296A

PATIENT
  Age: 89 Year
  Sex: Female
  Weight: 49.7 kg

DRUGS (8)
  1. DAPAGLIFLOZIN [Suspect]
     Active Substance: DAPAGLIFLOZIN
     Route: 065
  2. VALSARTAN [Concomitant]
     Active Substance: VALSARTAN
     Route: 065
  3. TORSEMIDE [Concomitant]
     Active Substance: TORSEMIDE
  4. LEVOTHYROXINE [Concomitant]
     Active Substance: LEVOTHYROXINE
  5. NIFEDIPINE [Concomitant]
     Active Substance: NIFEDIPINE
     Route: 065
  6. ATORVASTATIN [Concomitant]
     Active Substance: ATORVASTATIN
  7. BISOPROLOL [Concomitant]
     Active Substance: BISOPROLOL
     Route: 065
  8. APIXABAN [Concomitant]
     Active Substance: APIXABAN
     Route: 065

REACTIONS (4)
  - Cardiac failure congestive [Unknown]
  - Renal impairment [Unknown]
  - Haemorrhage [Unknown]
  - Ocular hyperaemia [Unknown]
